FAERS Safety Report 6169447-X (Version None)
Quarter: 2009Q2

REPORT INFORMATION
  Report Type: 
  Country: None (occurrence: None)
  Receive Date: 20090428
  Receipt Date: 20090417
  Transmission Date: 20091009
  Serious: Yes (Other)
  Sender: FDA-Public Use
  Company Number: PHHY2009BR14476

PATIENT
  Age: 54 Year
  Sex: Female

DRUGS (1)
  1. FORASEQ [Suspect]
     Dosage: UNK
     Dates: start: 20080601

REACTIONS (5)
  - ABASIA [None]
  - COUGH [None]
  - DEAFNESS [None]
  - DISTURBANCE IN ATTENTION [None]
  - DYSPNOEA [None]
